FAERS Safety Report 9846853 (Version 3)
Quarter: 2014Q2

REPORT INFORMATION
  Report Type: Spontaneous
  Country: AR (occurrence: AR)
  Receive Date: 20140127
  Receipt Date: 20140402
  Transmission Date: 20141212
  Serious: Yes (Hospitalization)
  Sender: FDA-Public Use
  Company Number: AR-PFIZER INC-2014021261

PATIENT
  Age: 81 Year
  Sex: Female

DRUGS (7)
  1. SUTENT [Suspect]
     Indication: GASTROINTESTINAL STROMAL TUMOUR
     Dosage: 50 MG, 1X/DAY (4 WEEKS ON AND 2 WEEKS OFF)
     Dates: start: 20131224, end: 20131231
  2. SUTENT [Suspect]
     Dosage: 21 DAYS IN A ROW, 10 OFF
     Dates: start: 20140318
  3. OMEPRAZOL [Concomitant]
     Indication: GASTRITIS PROPHYLAXIS
     Dosage: UNK
  4. SUCRALFATE [Concomitant]
     Dosage: UNK
  5. BETAMETHASONE [Concomitant]
     Indication: DECREASED APPETITE
     Dosage: UNK
  6. ATENOLOL [Concomitant]
     Indication: HYPERTENSION
     Dosage: UNK
  7. FORTISIP [Concomitant]
     Dosage: UNK

REACTIONS (7)
  - Eating disorder [Recovered/Resolved]
  - Weight decreased [Recovered/Resolved]
  - Dehydration [Recovered/Resolved]
  - Malaise [Recovered/Resolved]
  - Gastritis [Recovered/Resolved]
  - Abdominal discomfort [Recovered/Resolved]
  - Dizziness [Not Recovered/Not Resolved]
